FAERS Safety Report 12119772 (Version 3)
Quarter: 2016Q2

REPORT INFORMATION
  Report Type: Spontaneous
  Country: JP (occurrence: JP)
  Receive Date: 20160226
  Receipt Date: 20160401
  Transmission Date: 20160815
  Serious: Yes (Other)
  Sender: FDA-Public Use
  Company Number: JP-SUNOVION-2016SUN000482

PATIENT
  Age: 72 Year
  Sex: Male
  Weight: 65 kg

DRUGS (8)
  1. LUNESTA [Suspect]
     Active Substance: ESZOPICLONE
     Indication: INSOMNIA
     Dosage: DOSE UNKNOWN
     Route: 048
     Dates: start: 20160211, end: 20160212
  2. GASTER [Concomitant]
     Active Substance: FAMOTIDINE
     Dosage: UNK
     Route: 042
     Dates: start: 20160208, end: 20160212
  3. CEFMETAZON [Concomitant]
     Active Substance: CEFMETAZOLE SODIUM
     Dosage: UNK
     Route: 042
     Dates: start: 20160208, end: 20160212
  4. ARTANE [Concomitant]
     Active Substance: TRIHEXYPHENIDYL HYDROCHLORIDE
     Dosage: UNK
     Route: 048
  5. LONMIEL [Concomitant]
     Dosage: UNK
     Route: 048
  6. LINTON [Concomitant]
     Active Substance: HALOPERIDOL
     Dosage: UNK
     Route: 048
  7. TEPRENONE OHARA [Concomitant]
     Dosage: UNK
     Route: 048
  8. RIVOTRIL [Concomitant]
     Active Substance: CLONAZEPAM
     Dosage: UNK
     Route: 048

REACTIONS (1)
  - Delirium [Recovered/Resolved]

NARRATIVE: CASE EVENT DATE: 20160211
